FAERS Safety Report 20658457 (Version 1)
Quarter: 2022Q1

REPORT INFORMATION
  Report Type: Spontaneous
  Country: US (occurrence: US)
  Receive Date: 20220331
  Receipt Date: 20220331
  Transmission Date: 20220423
  Serious: Yes (Hospitalization)
  Sender: FDA-Public Use
  Company Number: US-GLAXOSMITHKLINE-US2022055613

PATIENT
  Age: 69 Year
  Sex: Female

DRUGS (2)
  1. INCRUSE ELLIPTA [Suspect]
     Active Substance: UMECLIDINIUM BROMIDE
     Indication: Asthma
     Dosage: UNK, PATIENT DID NOT HAVE MEDICATION ON HER AND WAS NOT ABLE TO GET TO IT.
     Dates: start: 20210322
  2. BREO ELLIPTA [Suspect]
     Active Substance: FLUTICASONE FUROATE\VILANTEROL TRIFENATATE
     Indication: Asthma
     Dosage: UNK, PATIEND DIDN^T HAVE MEDICATION ON HER AND COULDN^T GET TO IT.
     Dates: start: 20210322

REACTIONS (1)
  - Spinal laminectomy [Unknown]

NARRATIVE: CASE EVENT DATE: 20220101
